FAERS Safety Report 20694996 (Version 1)
Quarter: 2022Q2

REPORT INFORMATION
  Report Type: Spontaneous
  Country: HR (occurrence: HR)
  Receive Date: 20220411
  Receipt Date: 20220411
  Transmission Date: 20220720
  Serious: Yes (Other)
  Sender: FDA-Public Use
  Company Number: None

PATIENT
  Age: 16 Year
  Sex: Male

DRUGS (4)
  1. IBUPROFEN [Suspect]
     Active Substance: IBUPROFEN
     Route: 048
     Dates: start: 202112, end: 2021
  2. GLICLAZIDE [Suspect]
     Active Substance: GLICLAZIDE
     Route: 048
     Dates: start: 202112, end: 2021
  3. DIAZEPAM [Suspect]
     Active Substance: DIAZEPAM
     Route: 048
     Dates: start: 202112, end: 2021
  4. METFORMIN HYDROCHLORIDE\VILDAGLIPTIN [Suspect]
     Active Substance: METFORMIN HYDROCHLORIDE\VILDAGLIPTIN
     Route: 048
     Dates: start: 202112, end: 2021

REACTIONS (2)
  - Nausea [Unknown]
  - Suicide attempt [Unknown]

NARRATIVE: CASE EVENT DATE: 20211201
